FAERS Safety Report 6432672-4 (Version None)
Quarter: 2009Q4

REPORT INFORMATION
  Report Type: 
  Country: None (occurrence: None)
  Receive Date: 20091109
  Receipt Date: 20091030
  Transmission Date: 20100525
  Serious: Yes (Hospitalization)
  Sender: FDA-Public Use
  Company Number: GXKR2009GB12209

PATIENT
  Sex: Female

DRUGS (7)
  1. OMEPRAZOLE (NGX) [Suspect]
     Indication: PEPTIC ULCER
     Dosage: 20 MG, UNK
     Route: 048
  2. CLOZARIL [Interacting]
     Indication: SCHIZOPHRENIA
     Dosage: 200 A.M./350 MG P.M.
     Route: 048
     Dates: start: 20020206
  3. CLOZARIL [Interacting]
     Dosage: 150 MG A.M./250 MG P.M.
     Route: 048
  4. ENOXAPARIN SODIUM [Concomitant]
     Indication: DEEP VEIN THROMBOSIS
     Route: 058
  5. NAPROXEN [Concomitant]
     Route: 048
  6. PARACETAMOL [Concomitant]
     Route: 048
  7. TRAMADOL HCL [Concomitant]
     Route: 065

REACTIONS (7)
  - DEEP VEIN THROMBOSIS [None]
  - DRUG INTERACTION [None]
  - DRUG LEVEL INCREASED [None]
  - FALL [None]
  - HIP ARTHROPLASTY [None]
  - JOINT INJURY [None]
  - OEDEMA [None]
